FAERS Safety Report 17876687 (Version 1)
Quarter: 2020Q2

REPORT INFORMATION
  Report Type: Spontaneous
  Country: US (occurrence: US)
  Receive Date: 20200609
  Receipt Date: 20200609
  Transmission Date: 20200714
  Serious: No
  Sender: FDA-Public Use
  Company Number: US-SA-2020SA142616

PATIENT

DRUGS (1)
  1. DUPIXENT [Suspect]
     Active Substance: DUPILUMAB

REACTIONS (5)
  - Eye pruritus [Unknown]
  - Therapeutic response unexpected [Unknown]
  - Injection site pain [Unknown]
  - Lacrimation increased [Unknown]
  - Eczema [Unknown]
